FAERS Safety Report 8833672 (Version 1)
Quarter: 2012Q4

REPORT INFORMATION
  Report Type: Report from Study
  Country: US (occurrence: US)
  Receive Date: 20121010
  Receipt Date: 20121010
  Transmission Date: 20130627
  Serious: No
  Sender: FDA-Public Use
  Company Number: US-VERTEX PHARMACEUTICAL INC.-2012-021836

PATIENT
  Age: 25 Year
  Sex: Female

DRUGS (9)
  1. VX-950 [Suspect]
     Indication: HEPATITIS C
     Dosage: UNK
     Route: 048
  2. RIBAPAK [Concomitant]
     Dosage: 1200, qd
  3. PEGASYS [Concomitant]
     Dosage: 180 ?g, UNK
  4. PRENATAL                           /00231801/ [Concomitant]
     Dosage: 1 UNK, UNK
  5. TRAZODONE [Concomitant]
     Dosage: 100 mg, UNK
  6. BUSPAR [Concomitant]
     Dosage: 10 mg, UNK
  7. CETIRIZINE [Concomitant]
     Dosage: 10 mg, UNK
  8. IBU [Concomitant]
     Dosage: 400 mg, UNK
  9. TYLENOL /00020001/ [Concomitant]
     Dosage: 650 mg, tid

REACTIONS (1)
  - Headache [Unknown]
